FAERS Safety Report 6955591-3 (Version None)
Quarter: 2010Q3

REPORT INFORMATION
  Report Type: 
  Country: None (occurrence: None)
  Receive Date: 20100830
  Receipt Date: 20100818
  Transmission Date: 20110219
  Serious: Yes (Other)
  Sender: FDA-Public Use
  Company Number: US-WYE-H16364810

PATIENT
  Sex: Female
  Weight: 77.18 kg

DRUGS (4)
  1. EFFEXOR XR [Suspect]
     Indication: MAJOR DEPRESSION
     Dates: start: 20090601, end: 20090701
  2. EFFEXOR XR [Suspect]
     Indication: ANXIETY
     Dosage: WEANED OFF
     Dates: start: 20090701, end: 20090101
  3. METOPROLOL [Concomitant]
  4. LISINOPRIL [Concomitant]

REACTIONS (19)
  - ACTIVITIES OF DAILY LIVING IMPAIRED [None]
  - AGGRESSION [None]
  - ANGER [None]
  - CRYING [None]
  - DEPRESSION [None]
  - DRUG WITHDRAWAL SYNDROME [None]
  - FALL [None]
  - HEAD BANGING [None]
  - HOSTILITY [None]
  - IMPULSIVE BEHAVIOUR [None]
  - MOOD SWINGS [None]
  - NERVOUSNESS [None]
  - PARANOIA [None]
  - PSYCHOTIC DISORDER [None]
  - RESTLESSNESS [None]
  - SEROTONIN SYNDROME [None]
  - SOMNAMBULISM [None]
  - TINNITUS [None]
  - WEIGHT INCREASED [None]
